FAERS Safety Report 8117970-0 (Version None)
Quarter: 2012Q1

REPORT INFORMATION
  Report Type: 
  Country: None (occurrence: None)
  Receive Date: 20120202
  Receipt Date: 20120120
  Transmission Date: 20120608
  Serious: Yes (Hospitalization)
  Sender: FDA-Public Use
  Company Number: 2008-04329

PATIENT
  Age: 71 Year
  Sex: Female
  Weight: 57 kg

DRUGS (13)
  1. ACETYLCYSTEINE [Concomitant]
  2. REASEC (ATROPINE SULFATE, DIPHENOXYLATE HYDROCHLORIDE) [Concomitant]
  3. TRANSTEC (BUPRENORPHINE) [Concomitant]
  4. BUPRENORPHINE [Concomitant]
  5. HYDROCORTISONE [Concomitant]
  6. PARACETAMOL [Concomitant]
  7. METOPROLOL TARTRATE [Concomitant]
  8. VELCADE [Suspect]
     Indication: MULTIPLE MYELOMA
     Dosage: 2.1 MG,,INTRAVENOUS
     Route: 042
     Dates: start: 20080609, end: 20081020
  9. CERUCAL (METOCLOPRAMIDE HYDROCHLORIDE) [Concomitant]
  10. MELOXICAM [Concomitant]
  11. DEXAMETHASONE [Suspect]
     Indication: MULTIPLE MYELOMA
     Dosage: ORAL
     Route: 048
     Dates: start: 20080609, end: 20081020
  12. TENSIOMIN (CAPTOPRIL) [Concomitant]
  13. FELDOPINE [Concomitant]

REACTIONS (2)
  - CONJUNCTIVITIS [None]
  - ERYSIPELAS [None]
